FAERS Safety Report 8334567-8 (Version None)
Quarter: 2012Q2

REPORT INFORMATION
  Report Type: 
  Country: None (occurrence: None)
  Receive Date: 20120503
  Receipt Date: 20120425
  Transmission Date: 20120825
  Serious: Yes (Other)
  Sender: FDA-Public Use
  Company Number: US-JNJFOC-20120412459

PATIENT

DRUGS (1)
  1. XARELTO [Suspect]
     Indication: JOINT SURGERY
     Route: 048

REACTIONS (1)
  - EMBOLISM VENOUS [None]
